FAERS Safety Report 4911970-7 (Version None)
Quarter: 2006Q1

REPORT INFORMATION
  Report Type: 
  Country: None (occurrence: None)
  Receive Date: 20060213
  Receipt Date: 20060201
  Transmission Date: 20060701
  Serious: Yes (Disabling)
  Sender: FDA-Public Use
  Company Number: 2006016633

PATIENT
  Age: 65 Year
  Sex: Female

DRUGS (6)
  1. LYRICA [Suspect]
     Indication: NECK PAIN
     Dosage: 200 MG (100 MG, 2 IN 1 D), ORAL
     Route: 048
     Dates: start: 20060116, end: 20060117
  2. SIMVASTATIN [Concomitant]
  3. DILTIAZEM [Concomitant]
  4. BENDROFLUAZIDE             (BENDROFLUMETHIAZIDE) [Concomitant]
  5. SERETIDE            (FLUTICASONE PROPIONATE, SALMETEROL XINAFOATE) [Concomitant]
  6. SALBUTAMOL                     (SALBUTAMOL) [Concomitant]

REACTIONS (7)
  - FATIGUE [None]
  - HALLUCINATION [None]
  - MUSCULOSKELETAL STIFFNESS [None]
  - NAUSEA [None]
  - SLEEP DISORDER [None]
  - SOMNOLENCE [None]
  - VISION BLURRED [None]
